FAERS Safety Report 10160935 (Version 1)
Quarter: 2014Q2

REPORT INFORMATION
  Report Type: Spontaneous
  Country: US (occurrence: None)
  Receive Date: 20140507
  Receipt Date: 20140507
  Transmission Date: 20141212
  Serious: Yes (Other)
  Sender: FDA-Public Use
  Company Number: None

PATIENT
  Age: 33 Year
  Sex: Female
  Weight: 108.86 kg

DRUGS (1)
  1. DULOXETINE [Suspect]
     Indication: DEPRESSION
     Dosage: 60 MG 1 QD PO
     Route: 048
     Dates: start: 20140102, end: 20140106

REACTIONS (4)
  - Product substitution issue [None]
  - Headache [None]
  - Hallucination, auditory [None]
  - Memory impairment [None]
